FAERS Safety Report 22087424 (Version 1)
Quarter: 2023Q1

REPORT INFORMATION
  Report Type: Report from Study
  Country: US (occurrence: US)
  Receive Date: 20230313
  Receipt Date: 20230313
  Transmission Date: 20230418
  Serious: No
  Sender: FDA-Public Use
  Company Number: US-002147023-NVSC2023US053493

PATIENT
  Sex: Male
  Weight: 95.25 kg

DRUGS (1)
  1. CLOBETASOL [Suspect]
     Active Substance: CLOBETASOL
     Indication: Psoriasis
     Dosage: 0.05 %
     Route: 065
     Dates: start: 20230222

REACTIONS (6)
  - Dermatitis psoriasiform [Unknown]
  - Groin infection [Unknown]
  - Groin pain [Unknown]
  - Haemoglobin decreased [Unknown]
  - Mean cell haemoglobin decreased [Unknown]
  - Blood urea nitrogen/creatinine ratio increased [Unknown]
